FAERS Safety Report 9366473 (Version 4)
Quarter: 2013Q4

REPORT INFORMATION
  Report Type: Report from Study
  Country: US (occurrence: US)
  Receive Date: 20130625
  Receipt Date: 20131111
  Transmission Date: 20140711
  Serious: Yes (Hospitalization)
  Sender: FDA-Public Use
  Company Number: US-JNJFOC-20130608457

PATIENT
  Age: 52 Year
  Sex: Male
  Weight: 73 kg

DRUGS (7)
  1. PALIPERIDONE PALMITATE [Suspect]
     Indication: SCHIZOPHRENIA
     Dosage: MEDICATION KIT NUMBER: 365790
     Route: 030
     Dates: start: 20130313, end: 20130514
  2. PALIPERIDONE PALMITATE [Suspect]
     Indication: SCHIZOPHRENIA
     Route: 030
  3. RISPERIDONE [Concomitant]
     Indication: SCHIZOPHRENIA
     Route: 048
     Dates: start: 20130527, end: 20130527
  4. RISPERIDONE [Concomitant]
     Indication: SCHIZOPHRENIA
     Route: 048
     Dates: end: 20130312
  5. RISPERIDONE [Concomitant]
     Indication: SCHIZOPHRENIA
     Route: 048
     Dates: start: 20130330
  6. TRAZODONE [Concomitant]
     Indication: DEPRESSION
     Route: 048
     Dates: start: 20130311, end: 20130325
  7. BACITRACIN [Concomitant]
     Indication: WOUND
     Route: 061
     Dates: start: 20130311, end: 20130326

REACTIONS (1)
  - Psychotic disorder [Recovered/Resolved]
